FAERS Safety Report 5962987-5 (Version None)
Quarter: 2008Q4

REPORT INFORMATION
  Report Type: 
  Country: None (occurrence: None)
  Receive Date: 20081124
  Receipt Date: 20081119
  Transmission Date: 20090506
  Serious: Yes (Death)
  Sender: FDA-Public Use
  Company Number: CN-BRISTOL-MYERS SQUIBB COMPANY-14414312

PATIENT
  Age: 55 Year
  Sex: Female

DRUGS (3)
  1. APROVEL TABS 150 MG [Suspect]
     Indication: HYPERTENSION
     Route: 048
     Dates: start: 20080129, end: 20080129
  2. INSULIN [Concomitant]
     Indication: TYPE 2 DIABETES MELLITUS
     Dosage: FORM = SOLUTION
     Route: 065
  3. DIFORMIN [Concomitant]
     Indication: TYPE 2 DIABETES MELLITUS
     Dosage: FORM = TABS
     Route: 048

REACTIONS (1)
  - SUDDEN DEATH [None]
